FAERS Safety Report 24637002 (Version 1)
Quarter: 2024Q4

REPORT INFORMATION
  Report Type: Spontaneous
  Country: US (occurrence: None)
  Receive Date: 20241118
  Receipt Date: 20241118
  Transmission Date: 20250115
  Serious: Yes (Other)
  Sender: Public
  Company Number: None

PATIENT
  Age: 54 Year
  Sex: Female
  Weight: 71.1 kg

DRUGS (6)
  1. TEPEZZA [Suspect]
     Active Substance: TEPROTUMUMAB-TRBW
     Indication: Endocrine ophthalmopathy
     Dosage: INFUSION SERIES  INTRAVENOUS?
     Route: 042
     Dates: start: 20240701, end: 20241105
  2. SYNTHROID [Concomitant]
     Active Substance: LEVOTHYROXINE SODIUM
  3. SELENIUM [Concomitant]
     Active Substance: SELENIUM
  4. MAGNESIUM [Concomitant]
     Active Substance: MAGNESIUM
  5. mutilivitamin [Concomitant]
  6. vitamin d supplement [Concomitant]

REACTIONS (1)
  - Gingival recession [None]

NARRATIVE: CASE EVENT DATE: 20240910
